FAERS Safety Report 7294697-9 (Version None)
Quarter: 2011Q1

REPORT INFORMATION
  Report Type: 
  Country: None (occurrence: None)
  Receive Date: 20110207
  Receipt Date: 20110125
  Transmission Date: 20110831
  Serious: Yes (Death, Hospitalization)
  Sender: FDA-Public Use
  Company Number: KADN20110011

PATIENT
  Age: 51 Year
  Sex: Male
  Weight: 102 kg

DRUGS (4)
  1. METHADONE HCL [Suspect]
     Indication: PRODUCT USED FOR UNKNOWN INDICATION
     Dosage: INGESTION
     Dates: end: 20090101
  2. ACETAMINOPHEN 750 MG/HYDROCODONE 7.5 MG [Suspect]
     Indication: PRODUCT USED FOR UNKNOWN INDICATION
     Dosage: INGESTION
     Dates: end: 20090101
  3. PAROXETINE HCL [Suspect]
     Indication: PRODUCT USED FOR UNKNOWN INDICATION
     Dosage: INGESTION
     Dates: end: 20090101
  4. MORPHINE [Suspect]
     Indication: PRODUCT USED FOR UNKNOWN INDICATION
     Dosage: INGESTION
     Dates: end: 20090101

REACTIONS (17)
  - RESPIRATORY DEPRESSION [None]
  - BLOOD PRESSURE INCREASED [None]
  - ASPARTATE AMINOTRANSFERASE INCREASED [None]
  - HYPOTENSION [None]
  - VENTRICULAR FIBRILLATION [None]
  - GENERAL PHYSICAL HEALTH DETERIORATION [None]
  - DEPRESSED LEVEL OF CONSCIOUSNESS [None]
  - SINUS TACHYCARDIA [None]
  - CARDIAC ARREST [None]
  - BLOOD CREATINE INCREASED [None]
  - COMPLETED SUICIDE [None]
  - LUNG INFILTRATION [None]
  - URINE OUTPUT DECREASED [None]
  - ACUTE MYOCARDIAL INFARCTION [None]
  - AGITATION [None]
  - UNRESPONSIVE TO STIMULI [None]
  - PYREXIA [None]
